FAERS Safety Report 13243207 (Version 1)
Quarter: 2017Q1

REPORT INFORMATION
  Report Type: Spontaneous
  Country: DE (occurrence: DE)
  Receive Date: 20170216
  Receipt Date: 20170216
  Transmission Date: 20170428
  Serious: Yes (Other)
  Sender: FDA-Public Use
  Company Number: GXKR2017DE001043

PATIENT
  Sex: Female

DRUGS (1)
  1. ESTRAMON COMP [Suspect]
     Active Substance: ESTRADIOL\NORETHINDRONE ACETATE
     Indication: ALOPECIA
     Dosage: 1 DF, QD
     Route: 048

REACTIONS (3)
  - Palpitations [Recovered/Resolved]
  - Menstrual disorder [Recovered/Resolved]
  - Arrhythmia [Recovered/Resolved]
